FAERS Safety Report 9305209 (Version 1)
Quarter: 2013Q2

REPORT INFORMATION
  Report Type: Spontaneous
  Country: FR (occurrence: FR)
  Receive Date: 20130523
  Receipt Date: 20130523
  Transmission Date: 20140414
  Serious: Yes (Death, Hospitalization)
  Sender: FDA-Public Use
  Company Number: FR-JNJFOC-20130510988

PATIENT
  Age: 87 Year
  Sex: Female

DRUGS (7)
  1. XARELTO [Suspect]
     Indication: CEREBROVASCULAR ACCIDENT PROPHYLAXIS
     Route: 048
     Dates: start: 20130117, end: 20130125
  2. XARELTO [Suspect]
     Indication: ATRIAL FIBRILLATION
     Route: 048
     Dates: start: 20130117, end: 20130125
  3. CORDARONE [Suspect]
     Indication: ATRIAL FIBRILLATION
     Route: 065
  4. CORDARONE [Suspect]
     Indication: ARRHYTHMIA
     Route: 065
  5. PARACETAMOL [Concomitant]
     Route: 065
  6. LEXOMIL [Concomitant]
     Route: 065
  7. DETENSIEL [Concomitant]
     Route: 065

REACTIONS (2)
  - Melaena [Fatal]
  - Anaemia [Fatal]
